FAERS Safety Report 7459563-4 (Version None)
Quarter: 2011Q2

REPORT INFORMATION
  Report Type: 
  Country: None (occurrence: None)
  Receive Date: 20110427
  Receipt Date: 20110420
  Transmission Date: 20111010
  Serious: Yes (Life-Threatening, Hospitalization, Disabling, Other)
  Sender: FDA-Public Use
  Company Number: WAES 1103USA03358

PATIENT
  Age: 81 Year
  Sex: Male

DRUGS (14)
  1. ZOCOR [Suspect]
     Indication: ACUTE CORONARY SYNDROME
     Dosage: 40 MG/DAILY PO
     Route: 048
     Dates: start: 20080630
  2. PLACEBO (UNSPECIFIED) [Suspect]
     Indication: ACUTE CORONARY SYNDROME
     Dosage: PO ; PO
     Route: 048
     Dates: start: 20080630
  3. PLACEBO (UNSPECIFIED) [Suspect]
     Indication: ACUTE CORONARY SYNDROME
     Dosage: PO ; PO
     Route: 048
     Dates: start: 20080630
  4. BISOPROLOL FUMARATE [Concomitant]
  5. OMEPRAZOLE [Concomitant]
  6. SERETIDE [Concomitant]
  7. ALBUTEROL [Concomitant]
  8. CLOPIDOGREL [Concomitant]
  9. BENDROFLUMETHIAZIDE [Concomitant]
  10. NICORANDIL [Concomitant]
  11. QUININES04 [Concomitant]
  12. SPIRIVA [Concomitant]
  13. ISOSORBIDE MONONITRATE [Concomitant]
  14. SIMVASTATIN [Concomitant]

REACTIONS (4)
  - PLEURA CARCINOMA [None]
  - TUBERCULOSIS [None]
  - METASTASES TO BONE [None]
  - CHRONIC OBSTRUCTIVE PULMONARY DISEASE [None]
